FAERS Safety Report 20185312 (Version 2)
Quarter: 2021Q4

REPORT INFORMATION
  Report Type: Spontaneous
  Country: IR (occurrence: None)
  Receive Date: 20211215
  Receipt Date: 20211228
  Transmission Date: 20220303
  Serious: Yes (Hospitalization, Other)
  Sender: FDA-Public Use
  Company Number: IR-Unichem Pharmaceuticals (USA) Inc-UCM202112-001161

PATIENT
  Age: 5 Day
  Sex: Male
  Weight: 3.3 kg

DRUGS (4)
  1. QUETIAPINE [Suspect]
     Active Substance: QUETIAPINE
     Indication: Foetal exposure during pregnancy
     Dosage: UNKNOWN
  2. SERTRALINE [Suspect]
     Active Substance: SERTRALINE HYDROCHLORIDE
     Indication: Foetal exposure during pregnancy
     Dosage: UNKNOWN
  3. CLONAZEPAM [Suspect]
     Active Substance: CLONAZEPAM
     Indication: Foetal exposure during pregnancy
     Dosage: UNKNOWN
  4. RISPERIDONE [Suspect]
     Active Substance: RISPERIDONE
     Indication: Foetal exposure during pregnancy
     Dosage: UNKNOWN

REACTIONS (5)
  - Apnoea [Recovering/Resolving]
  - Hyperammonaemia [Recovering/Resolving]
  - Blood lactic acid increased [Recovering/Resolving]
  - Meconium aspiration syndrome [Recovering/Resolving]
  - Seizure [Recovering/Resolving]
